FAERS Safety Report 19986104 (Version 2)
Quarter: 2021Q4

REPORT INFORMATION
  Report Type: Spontaneous
  Country: IT (occurrence: IT)
  Receive Date: 20211022
  Receipt Date: 20211027
  Transmission Date: 20220303
  Serious: Yes (Hospitalization, Other)
  Sender: FDA-Public Use
  Company Number: IT-FERRINGPH-2021FE04287

PATIENT
  Age: 10 Year
  Sex: Male

DRUGS (7)
  1. MESALAMINE [Suspect]
     Active Substance: MESALAMINE
     Indication: Inflammatory bowel disease
     Dosage: UNK
     Route: 054
     Dates: start: 2010, end: 2010
  2. MESALAMINE [Suspect]
     Active Substance: MESALAMINE
     Indication: Colitis
     Dosage: UNK (START DATE: 2020)
     Route: 054
     Dates: end: 2020
  3. MESALAMINE [Suspect]
     Active Substance: MESALAMINE
     Dosage: UNK
     Route: 048
     Dates: start: 201001, end: 201601
  4. INFLIXIMAB [Suspect]
     Active Substance: INFLIXIMAB
     Indication: Inflammatory bowel disease
     Dosage: 10 MG/KG/MONTH
     Route: 065
     Dates: end: 202009
  5. THALIDOMIDE [Concomitant]
     Active Substance: THALIDOMIDE
     Indication: Inflammatory bowel disease
     Dosage: UNK
     Dates: end: 201709
  6. METHOTREXATE [Concomitant]
     Active Substance: METHOTREXATE
     Indication: Inflammatory bowel disease
     Dosage: UNK
     Dates: end: 201206
  7. AZATHIOPRINE [Concomitant]
     Active Substance: AZATHIOPRINE
     Indication: Inflammatory bowel disease
     Dosage: UNK (START DATE: MAY-2010)
     Dates: end: 201202

REACTIONS (7)
  - Acute kidney injury [Recovered/Resolved]
  - Labelled drug-disease interaction medication error [Recovered/Resolved]
  - Product use in unapproved indication [Recovered/Resolved]
  - Off label use [Recovered/Resolved]
  - Product use issue [Recovered/Resolved]
  - Contraindicated product administered [Recovered/Resolved]
  - Haematuria [Unknown]

NARRATIVE: CASE EVENT DATE: 20100101
